FAERS Safety Report 9604264 (Version 5)
Quarter: 2014Q1

REPORT INFORMATION
  Report Type: Spontaneous
  Country: NL (occurrence: NL)
  Receive Date: 20131008
  Receipt Date: 20140206
  Transmission Date: 20141002
  Serious: Yes (Hospitalization)
  Sender: FDA-Public Use
  Company Number: PHHY2013NL110657

PATIENT
  Age: 65 Year
  Sex: Male

DRUGS (5)
  1. TOBI [Suspect]
     Indication: CHRONIC OBSTRUCTIVE PULMONARY DISEASE
     Dosage: UNK
     Dates: start: 20130218
  2. TOBI [Suspect]
     Indication: OFF LABEL USE
  3. TOBI [Suspect]
     Indication: CYSTIC FIBROSIS
  4. TOBI PODHALER [Suspect]
     Indication: CHRONIC OBSTRUCTIVE PULMONARY DISEASE
     Dosage: UNK
     Dates: start: 20130218
  5. TOBI PODHALER [Suspect]
     Indication: OFF LABEL USE
     Dosage: UNK UKN, UNK
     Route: 055
     Dates: start: 201303

REACTIONS (11)
  - General physical health deterioration [Not Recovered/Not Resolved]
  - Quality of life decreased [Not Recovered/Not Resolved]
  - Malaise [Unknown]
  - Asthenia [Unknown]
  - Bacterial infection [Unknown]
  - Chronic obstructive pulmonary disease [Not Recovered/Not Resolved]
  - Vital capacity decreased [Not Recovered/Not Resolved]
  - Dyspnoea [Not Recovered/Not Resolved]
  - Forced expiratory volume decreased [Not Recovered/Not Resolved]
  - Hypersensitivity [Unknown]
  - Lung disorder [Unknown]
